FAERS Safety Report 10753601 (Version 2)
Quarter: 2016Q1

REPORT INFORMATION
  Report Type: Other
  Country: None (occurrence: US)
  Receive Date: 20150131
  Receipt Date: 20160219
  Transmission Date: 20160525
  Serious: No
  Sender: FDA-Public Use
  Company Number: US-ACORDA-ACO_106443_2014

PATIENT
  Age: 74 Year
  Sex: Female
  Weight: 72.56 kg

DRUGS (5)
  1. AMPYRA [Suspect]
     Active Substance: DALFAMPRIDINE
     Indication: NERVE INJURY
  2. AMPYRA [Suspect]
     Active Substance: DALFAMPRIDINE
     Indication: GAIT DISTURBANCE
     Dosage: 10 MG, Q 12 HRS
     Route: 048
     Dates: start: 20140114, end: 2014
  3. AMPYRA [Suspect]
     Active Substance: DALFAMPRIDINE
     Indication: SPINAL CORD INJURY
     Dosage: 10 MG, Q 12 HRS
     Route: 048
     Dates: start: 2014, end: 201507
  4. SYNTHROID [Concomitant]
     Active Substance: LEVOTHYROXINE SODIUM
     Indication: PRODUCT USED FOR UNKNOWN INDICATION
     Dosage: 100 ?G, QD
     Route: 048
     Dates: start: 2005
  5. VENLAFAXINE [Concomitant]
     Active Substance: VENLAFAXINE HYDROCHLORIDE
     Indication: PRODUCT USED FOR UNKNOWN INDICATION
     Dosage: 75 MG, BID
     Route: 048

REACTIONS (13)
  - Fall [Recovered/Resolved]
  - Inappropriate schedule of drug administration [Unknown]
  - Off label use [Unknown]
  - Therapeutic response unexpected [Unknown]
  - Fall [Unknown]
  - Dysstasia [Recovering/Resolving]
  - Therapy cessation [Unknown]
  - Somnolence [Not Recovered/Not Resolved]
  - Muscular weakness [Unknown]
  - Gait disturbance [Recovering/Resolving]
  - Therapy cessation [Recovered/Resolved]
  - Musculoskeletal discomfort [Not Recovered/Not Resolved]
  - Anxiety [Unknown]

NARRATIVE: CASE EVENT DATE: 20141216
